FAERS Safety Report 4732306-0 (Version None)
Quarter: 2005Q3

REPORT INFORMATION
  Report Type: 
  Country: None (occurrence: None)
  Receive Date: 20050726
  Receipt Date: 20050422
  Transmission Date: 20060218
  Serious: Yes (Other)
  Sender: FDA-Public Use
  Company Number: 05GER0097

PATIENT
  Age: 66 Year
  Sex: Male

DRUGS (6)
  1. AGGRASTAT [Suspect]
     Indication: CEREBROVASCULAR ACCIDENT
     Dosage: 40ML/HR BOLUS; 10ML/HR MAINTENANCE
     Route: 040
     Dates: start: 20050321, end: 20050322
  2. CLOPIDOGREL BISULFATE [Concomitant]
  3. ENALAPRIL MALEATE [Concomitant]
  4. ENOXAPARIN SODIUM [Concomitant]
  5. METFORMIN HCL [Concomitant]
  6. METOPROLOL SUCCINATE [Concomitant]

REACTIONS (1)
  - THROMBOCYTOPENIA [None]
